FAERS Safety Report 12580165 (Version 20)
Quarter: 2018Q2

REPORT INFORMATION
  Report Type: Report from Study
  Country: FR (occurrence: FR)
  Receive Date: 20160721
  Receipt Date: 20180409
  Transmission Date: 20180711
  Serious: Yes (Disabling, Other)
  Sender: FDA-Public Use
  Company Number: FR-ROCHE-1797079

PATIENT
  Age: 78 Year
  Sex: Male
  Weight: 80.6 kg

DRUGS (15)
  1. NAB-PACLITAXEL [Suspect]
     Active Substance: PACLITAXEL
     Indication: NON-SMALL CELL LUNG CANCER STAGE IV
     Dosage: MOST RECENT DOSE 185 MG: 01/JUL/2016 AT 11:55, 07/JUL/2016 AT 11:50 (140MG), 13/JUL/2016 AT 11:40, 0
     Route: 042
     Dates: start: 20160701, end: 20160901
  2. ASPEGIC [Concomitant]
     Active Substance: ASPIRIN DL-LYSINE
     Indication: CARDIAC DISORDER
     Route: 065
     Dates: start: 2010
  3. LYRICA [Concomitant]
     Active Substance: PREGABALIN
     Indication: PAIN
  4. PRAVASTATINE [Concomitant]
     Active Substance: PRAVASTATIN
     Indication: BLOOD CHOLESTEROL
  5. ACTISOUFRE [Concomitant]
     Indication: BRONCHITIS
     Route: 065
     Dates: start: 20161228, end: 20170102
  6. CALYPTOL (FRANCE) [Concomitant]
     Indication: BRONCHITIS
     Route: 065
     Dates: start: 20161228, end: 20170102
  7. CARBOPLATIN. [Suspect]
     Active Substance: CARBOPLATIN
     Indication: NON-SMALL CELL LUNG CANCER STAGE IV
     Dosage: INITIAL DOSE: AREA UNDER THE CONCENTRATION CURVE (AUC) 6 MILLIGRAMS PER MILLILITER PER MINUTE (MG/ML
     Route: 042
     Dates: start: 20160701, end: 20160818
  8. AMLOR [Concomitant]
     Active Substance: AMLODIPINE BESYLATE
     Indication: HYPERTENSION
  9. PRIMPERAN [Concomitant]
     Active Substance: METOCLOPRAMIDE HYDROCHLORIDE
     Indication: NAUSEA
  10. ATEZOLIZUMAB. [Suspect]
     Active Substance: ATEZOLIZUMAB
     Indication: NON-SMALL CELL LUNG CANCER STAGE IV
     Dosage: FIXED DOSE PER PROTOCOL. MOST RECENT DOSE: 01/JUL/2016 AT 10:43 AND 18/AUG/2016 AT 14:00; 10/MAY/201
     Route: 042
     Dates: start: 20160701, end: 20160818
  11. CARBOPLATIN. [Suspect]
     Active Substance: CARBOPLATIN
     Dosage: REDUCED DOSE
     Route: 042
  12. ZOPHREN [Concomitant]
     Active Substance: ONDANSETRON
     Indication: NAUSEA
     Route: 065
     Dates: start: 20160701, end: 20160818
  13. TRIATEC (FRANCE) [Concomitant]
     Active Substance: RAMIPRIL
     Indication: HYPERTENSION
     Route: 065
     Dates: start: 201512
  14. NAB-PACLITAXEL [Suspect]
     Active Substance: PACLITAXEL
     Dosage: REDUCED DOSE
     Route: 042
  15. CARDENSIEL [Concomitant]
     Active Substance: BISOPROLOL FUMARATE
     Indication: CARDIAC FAILURE
     Route: 065
     Dates: start: 201512

REACTIONS (3)
  - Diarrhoea [Recovered/Resolved]
  - Asthenia [Recovered/Resolved]
  - Asthenia [Recovered/Resolved]

NARRATIVE: CASE EVENT DATE: 20160702
